FAERS Safety Report 8283333-0 (Version None)
Quarter: 2012Q2

REPORT INFORMATION
  Report Type: 
  Country: None (occurrence: None)
  Receive Date: 20120413
  Receipt Date: 20120411
  Transmission Date: 20120825
  Serious: Yes (Life-Threatening, Hospitalization)
  Sender: FDA-Public Use
  Company Number: DE-ABBOTT-12P-062-0924478-00

PATIENT
  Sex: Female

DRUGS (1)
  1. HUMIRA [Suspect]
     Indication: CROHN'S DISEASE
     Route: 058
     Dates: start: 20110728, end: 20120301

REACTIONS (4)
  - COMA [None]
  - PANCREATIC DISORDER [None]
  - LOWER RESPIRATORY TRACT INFECTION VIRAL [None]
  - RENAL FAILURE ACUTE [None]
